FAERS Safety Report 23335521 (Version 2)
Quarter: 2023Q4

REPORT INFORMATION
  Report Type: Spontaneous
  Country: KR (occurrence: KR)
  Receive Date: 20231225
  Receipt Date: 20231225
  Transmission Date: 20240109
  Serious: Yes (Hospitalization)
  Sender: FDA-Public Use
  Company Number: KR-Atnahs Limited-ATNAHS20231203837

PATIENT

DRUGS (1)
  1. BONVIVA [Suspect]
     Active Substance: IBANDRONATE SODIUM
     Indication: Product used for unknown indication
     Dosage: BONVIVA INJ. WAS ADMINISTERED AS A SUBCUTANEOUS INJECTION INTO THE ABDOMEN
     Route: 058

REACTIONS (5)
  - Incorrect route of product administration [Unknown]
  - Pruritus [Unknown]
  - Oedema [Unknown]
  - Erythema [Unknown]
  - Infection [Unknown]
